FAERS Safety Report 12095420 (Version 5)
Quarter: 2019Q1

REPORT INFORMATION
  Report Type: Report from Study
  Country: US (occurrence: US)
  Receive Date: 20160219
  Receipt Date: 20190212
  Transmission Date: 20190417
  Serious: Yes (Hospitalization)
  Sender: FDA-Public Use
  Company Number: US-ACTELION-A-US2016-131477

PATIENT
  Age: 73 Year
  Sex: Female
  Weight: 57.14 kg

DRUGS (2)
  1. OPSUMIT [Suspect]
     Active Substance: MACITENTAN
     Indication: PULMONARY HYPERTENSION
     Dosage: 10 MG, QD
     Route: 048
     Dates: start: 20141017
  2. AMLODIPINE [Concomitant]
     Active Substance: AMLODIPINE BESYLATE

REACTIONS (13)
  - Cholecystectomy [Unknown]
  - Pyrexia [Unknown]
  - Intervertebral disc protrusion [Unknown]
  - Influenza [Recovered/Resolved]
  - Transfusion [Unknown]
  - Cholecystitis infective [Unknown]
  - Musculoskeletal pain [Unknown]
  - Streptococcus test positive [Unknown]
  - Dyspnoea [Unknown]
  - Procedural complication [Unknown]
  - Sciatica [Unknown]
  - Pain in extremity [Unknown]
  - Weight decreased [Unknown]

NARRATIVE: CASE EVENT DATE: 20180731
